FAERS Safety Report 15354725 (Version 1)
Quarter: 2018Q3

REPORT INFORMATION
  Report Type: Spontaneous
  Country: BE (occurrence: BE)
  Receive Date: 20180906
  Receipt Date: 20180906
  Transmission Date: 20181010
  Serious: Yes (Other)
  Sender: FDA-Public Use
  Company Number: BE-TEVA-2018-BE-950402

PATIENT
  Age: 81 Year
  Sex: Male

DRUGS (8)
  1. GLIQUIDONE [Concomitant]
     Active Substance: GLIQUIDONE
  2. ATORVASTATIN [Concomitant]
     Active Substance: ATORVASTATIN
  3. ENALAPRIL [Concomitant]
     Active Substance: ENALAPRIL
  4. FELODIPINE. [Concomitant]
     Active Substance: FELODIPINE
  5. ATENOLOL. [Concomitant]
     Active Substance: ATENOLOL
  6. ACETYLSALICYLIC ACID [Concomitant]
     Active Substance: ASPIRIN
  7. ALLOPURINOL. [Suspect]
     Active Substance: ALLOPURINOL
     Indication: GOUT
     Dosage: 100 MILLIGRAM DAILY;
     Route: 065
  8. RIVAROXABAN [Suspect]
     Active Substance: RIVAROXABAN
     Indication: ATRIAL FIBRILLATION
     Route: 065

REACTIONS (1)
  - Drug-induced liver injury [Recovered/Resolved]
